FAERS Safety Report 7226952-2 (Version None)
Quarter: 2011Q1

REPORT INFORMATION
  Report Type: 
  Country: None (occurrence: None)
  Receive Date: 20110111
  Receipt Date: 20110111
  Transmission Date: 20110831
  Serious: Yes (Other)
  Sender: FDA-Public Use
  Company Number: None

PATIENT
  Sex: Male
  Weight: 72.5755 kg

DRUGS (4)
  1. OXYCONTIN [Suspect]
     Indication: PAIN
     Dosage: 80MG 2 TIMES DAY ORAL
     Route: 048
     Dates: start: 20101021
  2. OXYCONTIN [Suspect]
     Dosage: 15MG 3 EVERY 6 HOURS ORAL
     Route: 048
     Dates: start: 20101021
  3. CLONAZEPAM [Concomitant]
  4. DIAZEPAM [Concomitant]

REACTIONS (7)
  - ABDOMINAL DISTENSION [None]
  - HEADACHE [None]
  - DECREASED ACTIVITY [None]
  - FURUNCLE [None]
  - RASH [None]
  - TINNITUS [None]
  - PAIN [None]
